FAERS Safety Report 9543387 (Version 1)
Quarter: 2013Q2

REPORT INFORMATION
  Report Type: Spontaneous
  Country: US (occurrence: None)
  Receive Date: 20130524
  Receipt Date: 20130524
  Transmission Date: 20140414
  Serious: Yes (Other)
  Sender: FDA-Public Use
  Company Number: PHEH2013US004303

PATIENT
  Sex: Female

DRUGS (1)
  1. GILENYA [Suspect]
     Indication: MULTIPLE SCLEROSIS
     Route: 048
     Dates: start: 20130107

REACTIONS (7)
  - Multiple sclerosis [None]
  - Motion sickness [None]
  - Fall [None]
  - Malaise [None]
  - Speech disorder [None]
  - Memory impairment [None]
  - Depression [None]
